FAERS Safety Report 11893344 (Version 2)
Quarter: 2016Q1

REPORT INFORMATION
  Report Type: Spontaneous
  Country: US (occurrence: US)
  Receive Date: 20160106
  Receipt Date: 20160210
  Transmission Date: 20160526
  Serious: Yes (Hospitalization)
  Sender: FDA-Public Use
  Company Number: US-EISAI MEDICAL RESEARCH-EC-2016-013319

PATIENT
  Age: 53 Year
  Sex: Male

DRUGS (2)
  1. FYCOMPA [Suspect]
     Active Substance: PERAMPANEL
     Indication: EPILEPSY
     Route: 048
     Dates: start: 201506, end: 2015
  2. FYCOMPA [Suspect]
     Active Substance: PERAMPANEL
     Indication: COMPLEX PARTIAL SEIZURES
     Route: 048
     Dates: start: 2015, end: 201512

REACTIONS (2)
  - Drug withdrawal convulsions [Recovered/Resolved]
  - Postictal psychosis [Recovered/Resolved]

NARRATIVE: CASE EVENT DATE: 201512
